FAERS Safety Report 5272537-7 (Version None)
Quarter: 2007Q1

REPORT INFORMATION
  Report Type: 
  Country: None (occurrence: None)
  Receive Date: 20070322
  Receipt Date: 20061101
  Transmission Date: 20070707
  Serious: No
  Sender: FDA-Public Use
  Company Number: US-BRISTOL-MYERS SQUIBB COMPANY-13563564

PATIENT
  Age: 60 Year
  Sex: Female

DRUGS (1)
  1. KENALOG [Suspect]
     Indication: SCAR
     Dosage: KENALOG-30 WAS RECEIVED IN JANUARY, MARCH + APRIL TO REDUCE SCARRING FROM FACIAL BURNS
     Dates: start: 20060101

REACTIONS (1)
  - BLOOD CORTISOL INCREASED [None]
